FAERS Safety Report 8596069 (Version 2)
Quarter: 2014Q1

REPORT INFORMATION
  Report Type: Spontaneous
  Country: US (occurrence: US)
  Receive Date: 20120605
  Receipt Date: 20140116
  Transmission Date: 20141002
  Serious: Yes (Hospitalization)
  Sender: FDA-Public Use
  Company Number: US-ASTRAZENECA-2012SE34843

PATIENT
  Age: 19443 Day
  Sex: Male
  Weight: 108.9 kg

DRUGS (20)
  1. NEXIUM [Suspect]
     Indication: GASTROOESOPHAGEAL REFLUX DISEASE
     Route: 048
     Dates: start: 2007
  2. NEXIUM [Suspect]
     Indication: GASTROOESOPHAGEAL REFLUX DISEASE
     Route: 048
     Dates: start: 2007, end: 2013
  3. NEXIUM [Suspect]
     Indication: GASTROOESOPHAGEAL REFLUX DISEASE
     Route: 048
     Dates: start: 20110916
  4. PRILOSEC [Suspect]
     Indication: GASTROOESOPHAGEAL REFLUX DISEASE
     Route: 048
     Dates: start: 2010
  5. PRILOSEC [Suspect]
     Indication: GASTROOESOPHAGEAL REFLUX DISEASE
     Route: 048
     Dates: start: 20110113
  6. ZANTAC [Concomitant]
  7. TRAZADONE [Concomitant]
     Indication: SLEEP DISORDER
  8. TEMAZEPAM [Concomitant]
     Indication: SLEEP DISORDER
  9. HYDROCODONE [Concomitant]
     Indication: PAIN
  10. NICTONE PAGE [Concomitant]
     Indication: SMOKING CESSATION THERAPY
  11. ASPIRIN [Concomitant]
  12. PRILOSEC OTC [Concomitant]
     Dates: start: 20100715
  13. HYDROCODONE W/ACETAMINOPHEN [Concomitant]
     Dates: start: 20100908
  14. HYDROXYZINE PAM [Concomitant]
     Dates: start: 20101122
  15. GEMFIBROZIL [Concomitant]
     Dates: start: 20110403
  16. LANSOPRAZOLE [Concomitant]
     Dates: start: 20110608
  17. NAPROXEN [Concomitant]
     Dates: start: 20110614
  18. SEROQUEL [Concomitant]
     Dates: start: 20110823
  19. MIRTAZAPINE [Concomitant]
     Dates: start: 20110817
  20. OLANZAPINE [Concomitant]
     Dates: start: 20120917

REACTIONS (9)
  - Abasia [Unknown]
  - Rib fracture [Unknown]
  - Fall [Unknown]
  - Arthralgia [Unknown]
  - Osteoporosis [Unknown]
  - Multiple fractures [Unknown]
  - Vitamin D deficiency [Unknown]
  - Osteoarthritis [Unknown]
  - Depression [Unknown]
